FAERS Safety Report 5943381-X (Version None)
Quarter: 2008Q4

REPORT INFORMATION
  Report Type: 
  Country: None (occurrence: None)
  Receive Date: 20081105
  Receipt Date: 20081105
  Transmission Date: 20090506
  Serious: Yes (Hospitalization)
  Sender: FDA-Public Use
  Company Number: None

PATIENT
  Sex: Female
  Weight: 49 kg

DRUGS (2)
  1. CISPLATIN [Suspect]
     Dosage: 90 MG
  2. ETOPOSIDE [Suspect]
     Dosage: 336 MG

REACTIONS (6)
  - CHILLS [None]
  - HAEMATEMESIS [None]
  - HAEMOPTYSIS [None]
  - NEUTROPENIA [None]
  - PYREXIA [None]
  - THROMBOCYTOPENIA [None]
